FAERS Safety Report 19499637 (Version 2)
Quarter: 2021Q3

REPORT INFORMATION
  Report Type: Report from Study
  Country: KR (occurrence: KR)
  Receive Date: 20210707
  Receipt Date: 20210723
  Transmission Date: 20211014
  Serious: Yes (Hospitalization)
  Sender: FDA-Public Use
  Company Number: KR-CELLTRION INC.-2021KR009090

PATIENT

DRUGS (35)
  1. HERZUMA [Suspect]
     Active Substance: TRASTUZUMAB-PKRB
     Indication: BILE DUCT CANCER
     Dosage: 339.3 MG (CYCLE 1)
     Route: 042
     Dates: start: 20210408
  2. IRCODON [Concomitant]
     Active Substance: OXYCODONE HYDROCHLORIDE
     Indication: ABDOMINAL PAIN
     Dosage: 1 DOSAGE FORM, PRN
     Route: 048
     Dates: start: 20200819
  3. CAFSOL [Concomitant]
     Indication: DECREASED APPETITE
     Dosage: 500 ML ONCE
     Route: 042
     Dates: start: 20210520, end: 20210520
  4. OXALITIN [Suspect]
     Active Substance: OXALIPLATIN
     Dosage: 138.5 MG
     Route: 042
     Dates: start: 20210616
  5. 5?FU [FLUOROURACIL] [Suspect]
     Active Substance: FLUOROURACIL
     Indication: BILE DUCT CANCER
     Dosage: 3744 MG
     Route: 042
     Dates: start: 20210408
  6. FERBON [Suspect]
     Active Substance: LEUCOVORIN CALCIUM
     Indication: BILE DUCT CANCER
     Dosage: 312 MG  (CONCENTRATION: 1% 300MG/30ML)
     Route: 042
     Dates: start: 20210408
  7. TAMIPOOL [ASCORBIC ACID;BIOTIN;CYANOCOBALAMIN;DEXPANTHENOL;ERGOCALCIFE [Concomitant]
     Indication: DECREASED APPETITE
     Dosage: 1 VIAL, ONCE
     Route: 042
     Dates: start: 20210615, end: 20210615
  8. ALOXI [Concomitant]
     Active Substance: PALONOSETRON HYDROCHLORIDE
     Dosage: 1 DF (VIAL) ONCE
     Route: 042
     Dates: start: 20210603, end: 20210603
  9. 5?FU [FLUOROURACIL] [Suspect]
     Active Substance: FLUOROURACIL
     Dosage: 3912 MG
     Route: 042
     Dates: start: 20210616
  10. WINUF PERI [Concomitant]
     Active Substance: AMINO ACIDS\DEXTROSE\ELECTROLYTES NOS\SOYBEAN OIL\VITAMINS
     Indication: DECREASED APPETITE
     Dosage: 1 BAG, ONCE
     Route: 042
     Dates: start: 20210602, end: 20210602
  11. WINUF PERI [Concomitant]
     Active Substance: AMINO ACIDS\DEXTROSE\ELECTROLYTES NOS\SOYBEAN OIL\VITAMINS
     Dosage: 654 ML, ONCE
     Route: 042
     Dates: start: 20210629, end: 20210629
  12. DEXAMETHASONE. [Concomitant]
     Active Substance: DEXAMETHASONE
     Dosage: 5 MG ONCE
     Route: 042
     Dates: start: 20210520, end: 20210520
  13. DEXAMETHASONE. [Concomitant]
     Active Substance: DEXAMETHASONE
     Dosage: 5 MG ONCE
     Route: 042
     Dates: start: 20210616, end: 20210616
  14. ALOXI [Concomitant]
     Active Substance: PALONOSETRON HYDROCHLORIDE
     Dosage: 1 DF (VIAL) ONCE
     Route: 042
     Dates: start: 20210616, end: 20210616
  15. 5?FU [FLUOROURACIL] [Suspect]
     Active Substance: FLUOROURACIL
     Dosage: 652 MG
     Route: 042
     Dates: start: 20210616
  16. JARDIANCE DUO [Concomitant]
     Active Substance: EMPAGLIFLOZIN\METFORMIN HYDROCHLORIDE
     Indication: DIABETES MELLITUS
     Dosage: 1 DOSAGE FORM, BID
     Route: 048
     Dates: start: 2018
  17. CYMBALTA [Concomitant]
     Active Substance: DULOXETINE HYDROCHLORIDE
     Indication: PALMAR-PLANTAR ERYTHRODYSAESTHESIA SYNDROME
     Dosage: 1 DOSAGE FORM, QD
     Route: 048
     Dates: start: 20210203, end: 20210615
  18. HERZUMA [Suspect]
     Active Substance: TRASTUZUMAB-PKRB
     Dosage: 250 MG (CYCLE 6)
     Route: 042
     Dates: start: 20210616
  19. DILATREND [Concomitant]
     Active Substance: CARVEDILOL
     Indication: HYPERTENSION
     Dosage: 1 DOSAGE FORM, QD
     Route: 048
     Dates: start: 2011
  20. LYRICA [Concomitant]
     Active Substance: PREGABALIN
     Indication: KNEE ARTHROPLASTY
     Dosage: 1 DOSAGE FORM, BID
     Route: 048
     Dates: start: 2015
  21. DEXAMETHASONE. [Concomitant]
     Active Substance: DEXAMETHASONE
     Dosage: 5 MG ONCE
     Route: 042
     Dates: start: 20210421, end: 20210421
  22. ALOXI [Concomitant]
     Active Substance: PALONOSETRON HYDROCHLORIDE
     Dosage: 1 DF (VIAL) ONCE
     Route: 042
     Dates: start: 20210520, end: 20210520
  23. DILATREND [Concomitant]
     Active Substance: CARVEDILOL
     Indication: HYPERTENSION
     Dosage: 1 DOSAGE FORM, QD
     Route: 048
     Dates: start: 2011
  24. MACPERAN [Concomitant]
     Active Substance: METOCLOPRAMIDE HYDROCHLORIDE
     Indication: NAUSEA
     Dosage: 1 DOSAGE FORM, PRN
     Route: 048
     Dates: start: 20210410
  25. WINUF PERI [Concomitant]
     Active Substance: AMINO ACIDS\DEXTROSE\ELECTROLYTES NOS\SOYBEAN OIL\VITAMINS
     Dosage: 654 ML, ONCE
     Route: 042
     Dates: start: 20210615, end: 20210615
  26. TAMIPOOL [ASCORBIC ACID;BIOTIN;CYANOCOBALAMIN;DEXPANTHENOL;ERGOCALCIFE [Concomitant]
     Dosage: 1 VIAL, ONCE
     Route: 042
     Dates: start: 20210629, end: 20210629
  27. DEXAMETHASONE. [Concomitant]
     Active Substance: DEXAMETHASONE
     Dosage: 5 MG ONCE
     Route: 042
     Dates: start: 20210506, end: 20210506
  28. ALOXI [Concomitant]
     Active Substance: PALONOSETRON HYDROCHLORIDE
     Indication: PROPHYLAXIS
     Dosage: 1 DF (VIAL) ONCE
     Route: 042
     Dates: start: 20210506, end: 20210506
  29. OXALITIN [Suspect]
     Active Substance: OXALIPLATIN
     Indication: BILE DUCT CANCER
     Dosage: 132.6 MG
     Route: 042
     Dates: start: 20210408
  30. 5?FU [FLUOROURACIL] [Suspect]
     Active Substance: FLUOROURACIL
     Indication: BILE DUCT CANCER
     Dosage: 624 MG
     Route: 042
     Dates: start: 20210408
  31. FERBON [Suspect]
     Active Substance: LEUCOVORIN CALCIUM
     Dosage: 326 MG (CONCENTRATION: 1% 300MG/30ML)
     Route: 042
     Dates: start: 20210616
  32. GINEXIN?F [Concomitant]
     Indication: KNEE ARTHROPLASTY
     Dosage: 1 DOSAGE FORM, QD
     Route: 048
     Dates: start: 2015
  33. MEGACE F [Concomitant]
     Indication: DECREASED APPETITE
     Dosage: 1 PACK
     Route: 048
     Dates: start: 20210520
  34. DEXAMETHASONE. [Concomitant]
     Active Substance: DEXAMETHASONE
     Indication: PROPHYLAXIS
     Dosage: 5 ML ONCE
     Route: 042
     Dates: start: 20210408, end: 20210408
  35. DEXAMETHASONE. [Concomitant]
     Active Substance: DEXAMETHASONE
     Dosage: 5 MG ONCE
     Route: 042
     Dates: start: 20210603, end: 20210603

REACTIONS (2)
  - Off label use [Unknown]
  - Neutrophil count decreased [Recovered/Resolved]

NARRATIVE: CASE EVENT DATE: 20210629
